FAERS Safety Report 23226490 (Version 1)
Quarter: 2023Q4

REPORT INFORMATION
  Report Type: Spontaneous
  Country: GB (occurrence: GB)
  Receive Date: 20231124
  Receipt Date: 20231124
  Transmission Date: 20240110
  Serious: Yes (Other)
  Sender: FDA-Public Use
  Company Number: None

PATIENT
  Age: 43 Year
  Sex: Female
  Weight: 104 kg

DRUGS (2)
  1. AJOVY [Suspect]
     Active Substance: FREMANEZUMAB-VFRM
     Indication: Migraine
     Dosage: 221ML;
     Route: 065
     Dates: start: 20231022
  2. ESTRADIOL [Concomitant]
     Active Substance: ESTRADIOL
     Indication: Oophorectomy bilateral
     Dates: start: 20210525

REACTIONS (2)
  - Anxiety [Not Recovered/Not Resolved]
  - Cluster headache [Not Recovered/Not Resolved]

NARRATIVE: CASE EVENT DATE: 20231103
